FAERS Safety Report 11638966 (Version 2)
Quarter: 2015Q4

REPORT INFORMATION
  Report Type: Spontaneous
  Country: US (occurrence: DE)
  Receive Date: 20151018
  Receipt Date: 20151018
  Transmission Date: 20160304
  Serious: Yes (Death)
  Sender: FDA-Public Use
  Company Number: US-ABBVIE-15K-163-1482980-00

PATIENT
  Sex: Female

DRUGS (1)
  1. HUMIRA [Suspect]
     Active Substance: ADALIMUMAB
     Indication: PSORIASIS
     Route: 058

REACTIONS (8)
  - Renal failure [Fatal]
  - General physical health deterioration [Fatal]
  - Intestinal perforation [Fatal]
  - Liver disorder [Fatal]
  - Sepsis [Fatal]
  - Pain [Fatal]
  - Contraindicated drug administered [Fatal]
  - Asthenia [Fatal]
